FAERS Safety Report 17704995 (Version 2)
Quarter: 2020Q2

REPORT INFORMATION
  Report Type: Spontaneous
  Country: BE (occurrence: BE)
  Receive Date: 20200424
  Receipt Date: 20200507
  Transmission Date: 20200714
  Serious: Yes (Congenital Anomaly)
  Sender: FDA-Public Use
  Company Number: NVSC2020BE107887

PATIENT
  Age: 1 Year
  Sex: Male

DRUGS (2)
  1. CLINDAMYCIN. [Suspect]
     Active Substance: CLINDAMYCIN
     Dosage: SUSPECTED EXPOSURE OF THE CHILD DURING PREGNENCY AND VIA BREASTFEEDING
     Route: 063
  2. CLINDAMYCIN. [Suspect]
     Active Substance: CLINDAMYCIN
     Indication: FOETAL EXPOSURE DURING PREGNANCY
     Route: 064

REACTIONS (3)
  - Exposure via breast milk [Unknown]
  - Tooth hypoplasia [Unknown]
  - Maternal exposure during pregnancy [Unknown]
